FAERS Safety Report 5705622-3 (Version None)
Quarter: 2008Q2

REPORT INFORMATION
  Report Type: 
  Country: None (occurrence: None)
  Receive Date: 20080411
  Receipt Date: 20080327
  Transmission Date: 20081010
  Serious: Yes (Hospitalization)
  Sender: FDA-Public Use
  Company Number: IDA-00024

PATIENT
  Age: 71 Year
  Sex: Female

DRUGS (1)
  1. INDERAL [Suspect]
     Indication: ESSENTIAL HYPERTENSION
     Dosage: TOTAL DAILY DOSE: 40 MG PO
     Route: 048
     Dates: start: 20061231, end: 20070115

REACTIONS (2)
  - RASH MACULAR [None]
  - RASH PRURITIC [None]
